FAERS Safety Report 18456795 (Version 1)
Quarter: 2020Q4

REPORT INFORMATION
  Report Type: Spontaneous
  Country: US (occurrence: US)
  Receive Date: 20201103
  Receipt Date: 20201103
  Transmission Date: 20210114
  Serious: Yes (Hospitalization, Other)
  Sender: FDA-Public Use
  Company Number: US-LUPIN PHARMACEUTICALS INC.-2020-08245

PATIENT
  Age: 39 Year
  Sex: Male

DRUGS (1)
  1. HYDROXYCHLOROQUINE [Suspect]
     Active Substance: HYDROXYCHLOROQUINE
     Indication: COVID-19 PNEUMONIA
     Dosage: UNK
     Route: 065

REACTIONS (7)
  - Respiratory failure [Unknown]
  - Blood methaemoglobin [Recovered/Resolved]
  - Acute kidney injury [Unknown]
  - Off label use [Unknown]
  - Haemolytic anaemia [Recovered/Resolved]
  - Delirium [Unknown]
  - Liver injury [Unknown]

NARRATIVE: CASE EVENT DATE: 2020
